FAERS Safety Report 25330777 (Version 2)
Quarter: 2025Q2

REPORT INFORMATION
  Report Type: Spontaneous
  Country: US (occurrence: US)
  Receive Date: 20250519
  Receipt Date: 20250520
  Transmission Date: 20250717
  Serious: Yes (Other)
  Sender: PFIZER
  Company Number: US-PFIZER INC-202500081576

PATIENT
  Age: 76 Year
  Sex: Female

DRUGS (16)
  1. IBRANCE [Suspect]
     Active Substance: PALBOCICLIB
     Indication: Breast cancer female
  2. IBRANCE [Suspect]
     Active Substance: PALBOCICLIB
     Route: 048
  3. NORVASC [Concomitant]
     Active Substance: AMLODIPINE BESYLATE
     Dosage: TAKE ONE TABLET (5 MG TOTAL) BY MOUTH 2 (TWO) TIMES A DAY
     Route: 048
  4. CALCIUM CARBONATE\VITAMIN D [Concomitant]
     Active Substance: CALCIUM CARBONATE\VITAMIN D
     Indication: Bone pain
     Dosage: 600 MG-10 MCG (400 UNIT) TABLET/ONE TABLET BY MOUTH EVERY OTHER DAY
     Route: 048
  5. COREG [Concomitant]
     Active Substance: CARVEDILOL
     Dosage: TAKE ONE TABLET (25 MG TOTAL) BY MOUTH IN THE MORNING AND ONE TABLET IN THE EVENING WITH MEALS
     Route: 048
  6. CATAPRES [Concomitant]
     Active Substance: CLONIDINE HYDROCHLORIDE
     Dosage: 0.1 MG TOTAL BY MOUTH ONE TIME A DAY/TAKES AT NIGHT DUE TO DROWSINESS
     Route: 048
  7. HYDRODIURIL [Concomitant]
     Active Substance: HYDROCHLOROTHIAZIDE
     Dosage: TAKE ONE TABLET (25 MG TOTAL) BY MOUTH ONE (1) TIME A DAY
     Route: 048
  8. FEMARA [Concomitant]
     Active Substance: LETROZOLE
     Dosage: TAKE ONE TABLET (2.5 MG TOTAL) BY MOUTH ONE (1) TIME A DAY
     Route: 048
     Dates: start: 20250320
  9. COZAAR [Concomitant]
     Active Substance: LOSARTAN POTASSIUM
     Dosage: TAKE ONE TABLET (100 MG TOTAL) BY MOUTH ONE (1) TIME A DAY
     Route: 048
  10. MEVACOR [Concomitant]
     Active Substance: LOVASTATIN
     Dosage: TAKE ONE TABLET (40 MG TOTAL) BY MOUTH NIGHTLY
     Route: 048
  11. PHENERGAN [Concomitant]
     Active Substance: PROMETHAZINE HYDROCHLORIDE
     Indication: Nausea
     Route: 048
     Dates: start: 20250211
  12. ALDACTONE [Concomitant]
     Active Substance: SPIRONOLACTONE
     Dosage: TAKE ONE TABLET (25 MG TOTAL) BY MOUTH ONE (1) TIME A DAY
     Route: 048
  13. XGEVA [Concomitant]
     Active Substance: DENOSUMAB
     Indication: Bone pain
  14. XGEVA [Concomitant]
     Active Substance: DENOSUMAB
     Dosage: UNK, EVERY 3 MONTHS
  15. LETROZOLE [Concomitant]
     Active Substance: LETROZOLE
     Indication: Lymphadenopathy
  16. OSCAL D [CALCIUM CARBONATE;COLECALCIFEROL] [Concomitant]

REACTIONS (1)
  - Neutropenia [Unknown]
